FAERS Safety Report 20933256 (Version 1)
Quarter: 2022Q2

REPORT INFORMATION
  Report Type: Spontaneous
  Country: US (occurrence: None)
  Receive Date: 20220607
  Receipt Date: 20220607
  Transmission Date: 20220721
  Serious: Yes (Life-Threatening, Hospitalization, Disabling)
  Sender: FDA-Public Use
  Company Number: None

PATIENT
  Age: 43 Year
  Sex: Female
  Weight: 68.04 kg

DRUGS (28)
  1. OXYCODONE [Suspect]
     Active Substance: OXYCODONE
     Indication: Multiple sclerosis
     Dosage: FREQUENCY : DAILY;?
     Route: 048
     Dates: start: 20190612, end: 20190620
  2. OXYCODONE [Suspect]
     Active Substance: OXYCODONE
     Indication: Fibromyalgia
  3. OXYCODONE [Suspect]
     Active Substance: OXYCODONE
     Indication: Neuropathy peripheral
  4. OXYCODONE [Suspect]
     Active Substance: OXYCODONE
     Indication: Seizure
  5. OXYCODONE [Suspect]
     Active Substance: OXYCODONE
     Indication: Pain
  6. OXYCODONE [Suspect]
     Active Substance: OXYCODONE
     Indication: Cervix carcinoma
  7. OXYCODONE [Suspect]
     Active Substance: OXYCODONE
     Indication: Anaemia
  8. OXYCODONE [Suspect]
     Active Substance: OXYCODONE
     Indication: Cardiac disorder
  9. OXYCODONE [Suspect]
     Active Substance: OXYCODONE
     Indication: Pulmonary mass
  10. TRAZODONE [Suspect]
     Active Substance: TRAZODONE HYDROCHLORIDE
  11. ZOLPIDEM [Suspect]
     Active Substance: ZOLPIDEM TARTRATE
  12. MECLIZINE [Suspect]
     Active Substance: MECLIZINE HYDROCHLORIDE
  13. DULOXETINE [Suspect]
     Active Substance: DULOXETINE
  14. TIZANIDINE [Suspect]
     Active Substance: TIZANIDINE
  15. POTASSIUM [Suspect]
     Active Substance: POTASSIUM
  16. VITAMIN B [Suspect]
     Active Substance: VITAMIN B
  17. VITAMIN D [Suspect]
     Active Substance: VITAMIN D NOS
  18. VITAMIN C [Suspect]
     Active Substance: ASCORBIC ACID
  19. CYMBALTA [Concomitant]
     Active Substance: DULOXETINE HYDROCHLORIDE
  20. AMBIEN [Concomitant]
     Active Substance: ZOLPIDEM TARTRATE
  21. CYCLOBENZIPINE SODIUM [Concomitant]
  22. PROMETHAZINE [Concomitant]
     Active Substance: PROMETHAZINE HYDROCHLORIDE
  23. KEPPRA [Concomitant]
     Active Substance: LEVETIRACETAM
  24. LYRICA [Concomitant]
     Active Substance: PREGABALIN
  25. ZOFRAN [Concomitant]
     Active Substance: ONDANSETRON HYDROCHLORIDE
  26. BACTRIM [Concomitant]
     Active Substance: SULFAMETHOXAZOLE\TRIMETHOPRIM
  27. SINGULAIR [Concomitant]
     Active Substance: MONTELUKAST SODIUM
  28. ALBUTEROL [Concomitant]
     Active Substance: ALBUTEROL

REACTIONS (34)
  - Drug dispensed to wrong patient [None]
  - Product administered by wrong person [None]
  - Manufacturing production issue [None]
  - Poisoning [None]
  - Malaise [None]
  - Cor pulmonale [None]
  - Cardiac murmur [None]
  - Neuropathy peripheral [None]
  - Fibromyalgia [None]
  - Anaemia [None]
  - Systemic lupus erythematosus [None]
  - Pulmonary mass [None]
  - Depression [None]
  - Vomiting [None]
  - Constipation [None]
  - Blood pressure decreased [None]
  - Urinary tract infection [None]
  - Migraine [None]
  - Pain [None]
  - Transient ischaemic attack [None]
  - Cerebrovascular accident [None]
  - Intervertebral disc protrusion [None]
  - Blood potassium decreased [None]
  - Visual impairment [None]
  - Musculoskeletal disorder [None]
  - Fracture [None]
  - Chest pain [None]
  - Gastric bypass [None]
  - Gallbladder disorder [None]
  - Renal failure [None]
  - Cervix carcinoma [None]
  - Gait disturbance [None]
  - Weight increased [None]
  - Weight decreased [None]

NARRATIVE: CASE EVENT DATE: 20190513
